FAERS Safety Report 16059781 (Version 6)
Quarter: 2021Q4

REPORT INFORMATION
  Report Type: Spontaneous
  Country: DE (occurrence: DE)
  Receive Date: 20190311
  Receipt Date: 20211119
  Transmission Date: 20220303
  Serious: Yes (Hospitalization, Other)
  Sender: FDA-Public Use
  Company Number: DE-CELLTRION INC.-2019DE019285

PATIENT

DRUGS (15)
  1. INFLECTRA [Suspect]
     Active Substance: INFLIXIMAB-DYYB
     Indication: Rheumatoid arthritis
     Dosage: UNK
     Dates: start: 2018
  2. INFLECTRA [Suspect]
     Active Substance: INFLIXIMAB-DYYB
     Dosage: UNK
     Dates: start: 201901, end: 201901
  3. INFLECTRA [Suspect]
     Active Substance: INFLIXIMAB-DYYB
     Dosage: UNK
     Dates: start: 201902, end: 201902
  4. ENALAPRIL [Concomitant]
     Active Substance: ENALAPRIL
     Dosage: 10 MG, 1-0-1-0
  5. AMLODIPINE BESYLATE [Concomitant]
     Active Substance: AMLODIPINE BESYLATE
     Dosage: 5 MG, 1-0-1-0
  6. PLAVIX [Concomitant]
     Active Substance: CLOPIDOGREL BISULFATE
     Dosage: 75, 1X/DAY  0-0-1-0
  7. LEVOTHYROXINE SODIUM [Concomitant]
     Active Substance: LEVOTHYROXINE SODIUM
     Dosage: 100 UNKNOWN UNIT, 1X/DAY 1-0-0-0
  8. CORTISOL [Concomitant]
     Active Substance: HYDROCORTISONE
     Dosage: 5 MG, 1-0-0-0
  9. VITAMIN E + MAGNESIUM [Concomitant]
     Dosage: UNK
  10. PANTOPRAZOLE SODIUM [Concomitant]
     Active Substance: PANTOPRAZOLE SODIUM
     Dosage: 20 UNKNOWN UNIT, 1X/DAY, 1-0-0-0
  11. ROSUVASTATIN CALCIUM [Concomitant]
     Active Substance: ROSUVASTATIN CALCIUM
     Indication: Lipids abnormal
     Dosage: 20 MG, 0-0-0-1
  12. EZETIMIBE [Concomitant]
     Active Substance: EZETIMIBE
     Dosage: 10 MG, 0-0-0-1
  13. ACETAMINOPHEN [Concomitant]
     Active Substance: ACETAMINOPHEN
     Dosage: 500 MG, AS NEEDED
  14. PREDNISOLONE [Concomitant]
     Active Substance: PREDNISOLONE
     Dosage: 5 MG, 1X/DAY, 1-0-0
  15. FISH OIL [Concomitant]
     Active Substance: FISH OIL
     Dosage: 1X/DAY, 1-0-0

REACTIONS (21)
  - Pain of skin [Not Recovered/Not Resolved]
  - Rash [Recovered/Resolved]
  - Drug hypersensitivity [Recovered/Resolved]
  - Haemarthrosis [Not Recovered/Not Resolved]
  - Renal disorder [Unknown]
  - Psoriasis [Not Recovered/Not Resolved]
  - Arthritis [Not Recovered/Not Resolved]
  - Dysphagia [Not Recovered/Not Resolved]
  - Bone swelling [Not Recovered/Not Resolved]
  - Muscle spasticity [Not Recovered/Not Resolved]
  - Sensory loss [Not Recovered/Not Resolved]
  - Periostitis [Not Recovered/Not Resolved]
  - Alopecia [Unknown]
  - Pruritus [Recovered/Resolved]
  - Feeling hot [Unknown]
  - Feeling cold [Unknown]
  - Proteinuria [Unknown]
  - Blood urine present [Unknown]
  - Liver function test increased [Unknown]
  - Skin haemorrhage [Unknown]
  - Skin laceration [Unknown]

NARRATIVE: CASE EVENT DATE: 20190121
